FAERS Safety Report 9260802 (Version 3)
Quarter: 2013Q2

REPORT INFORMATION
  Report Type: Spontaneous
  Country: US (occurrence: US)
  Receive Date: 20130429
  Receipt Date: 20130530
  Transmission Date: 20140414
  Serious: Yes (Other)
  Sender: FDA-Public Use
  Company Number: US-BAYER-2013-042811

PATIENT
  Age: 63 Year
  Sex: Female
  Weight: 55.79 kg

DRUGS (5)
  1. XARELTO [Suspect]
     Indication: THROMBOSIS PROPHYLAXIS
     Dosage: 10 MG, UNK
     Route: 048
     Dates: start: 20130111, end: 20130123
  2. XARELTO [Suspect]
     Indication: KNEE ARTHROPLASTY
  3. ACETYLSALICYLIC ACID({=100 MG) [Suspect]
     Indication: ANTICOAGULANT THERAPY
     Dosage: 81 MG, QD
     Route: 048
     Dates: start: 2013
  4. VITAMIN B [Concomitant]
     Indication: NUTRITIONAL SUPPLEMENTATION
     Route: 065
     Dates: start: 2013
  5. VITAMIN B [Concomitant]
     Indication: NUTRITIONAL SUPPLEMENTATION

REACTIONS (10)
  - Haemorrhage [Recovering/Resolving]
  - Pain in extremity [Recovered/Resolved]
  - Pain in extremity [Recovered/Resolved]
  - Immobile [Recovered/Resolved]
  - Ulcer [Unknown]
  - Nerve compression [Not Recovered/Not Resolved]
  - Pain in extremity [Not Recovered/Not Resolved]
  - Local swelling [Recovered/Resolved]
  - Paraesthesia [Not Recovered/Not Resolved]
  - Pain in extremity [Recovering/Resolving]
